FAERS Safety Report 11853363 (Version 2)
Quarter: 2016Q1

REPORT INFORMATION
  Report Type: Report from Study
  Country: PL (occurrence: PL)
  Receive Date: 20151218
  Receipt Date: 20160121
  Transmission Date: 20160526
  Serious: Yes (Hospitalization)
  Sender: FDA-Public Use
  Company Number: PL-BIOGEN-2015BI142892

PATIENT
  Age: 47 Year
  Sex: Female
  Weight: 53 kg

DRUGS (5)
  1. BG00012 [Suspect]
     Active Substance: DIMETHYL FUMARATE
     Indication: MULTIPLE SCLEROSIS
     Route: 048
     Dates: start: 20141003
  2. PROXACIN [Concomitant]
     Indication: URINARY TRACT INFECTION
     Dates: start: 20151009, end: 20151015
  3. HEPATIL [Concomitant]
     Route: 048
     Dates: start: 20110223
  4. CLONAZEPAM. [Concomitant]
     Active Substance: CLONAZEPAM
     Indication: ANXIETY DISORDER
     Route: 048
     Dates: start: 20140511
  5. LEVOMINE (ETYNYLOESTRADIOL + LEWONORGESTREL) [Concomitant]
     Indication: CONTRACEPTION
     Route: 048
     Dates: start: 201308

REACTIONS (1)
  - Cholelithiasis [Recovered/Resolved]

NARRATIVE: CASE EVENT DATE: 20151009
